FAERS Safety Report 9355818 (Version 2)
Quarter: 2013Q2

REPORT INFORMATION
  Report Type: Spontaneous
  Country: US (occurrence: US)
  Receive Date: 20130619
  Receipt Date: 20130627
  Transmission Date: 20140414
  Serious: Yes (Other)
  Sender: FDA-Public Use
  Company Number: CHPA2013US009920

PATIENT
  Age: 57 Year
  Sex: Male

DRUGS (3)
  1. PERDIEM OVERNIGHT RELIEF PILLS [Suspect]
     Indication: CONSTIPATION
     Dosage: 2 DF, QD OR QOD
     Route: 048
  2. PERCOCET [Concomitant]
     Indication: PAIN
     Dosage: UNK, UNK
     Dates: start: 20130608
  3. MORPHINE [Concomitant]
     Dosage: UNK, UNK

REACTIONS (6)
  - Bladder cancer [Recovered/Resolved]
  - Arthritis [Not Recovered/Not Resolved]
  - Post procedural infection [Not Recovered/Not Resolved]
  - Peroneal nerve injury [Not Recovered/Not Resolved]
  - Joint swelling [Not Recovered/Not Resolved]
  - Arthralgia [Not Recovered/Not Resolved]
